FAERS Safety Report 5047555-4 (Version None)
Quarter: 2006Q3

REPORT INFORMATION
  Report Type: 
  Country: None (occurrence: None)
  Receive Date: 20060703
  Receipt Date: 20060619
  Transmission Date: 20061208
  Serious: Yes (Death)
  Sender: FDA-Public Use
  Company Number: 163-21880-06020413

PATIENT
  Age: 71 Year
  Sex: Female

DRUGS (10)
  1. REVLIMID [Suspect]
     Indication: MYELODYSPLASTIC SYNDROME
     Dosage: 1 IN 1 D, ORAL
     Route: 048
     Dates: start: 20060101, end: 20060101
  2. REVLIMID [Suspect]
     Indication: MYELODYSPLASTIC SYNDROME
     Dosage: 1 IN 1 D, ORAL
     Route: 048
     Dates: start: 20060209, end: 20060220
  3. LOPRESSOR [Concomitant]
  4. INSULIN [Concomitant]
  5. ZOLOFT [Concomitant]
  6. IMDUR [Concomitant]
  7. MONOPRIL (FOSINIOPRIL SODIUM) [Concomitant]
  8. PRAVACHOL [Concomitant]
  9. TRAMADOL HCL [Concomitant]
  10. VALPRO (VALPROATE SODIUM) [Concomitant]

REACTIONS (4)
  - PLATELET COUNT DECREASED [None]
  - PRURITUS [None]
  - RASH MACULO-PAPULAR [None]
  - SKIN LESION [None]
